FAERS Safety Report 20995298 (Version 4)
Quarter: 2022Q3

REPORT INFORMATION
  Report Type: Report from Study
  Country: BR (occurrence: BR)
  Receive Date: 20220622
  Receipt Date: 20220707
  Transmission Date: 20221027
  Serious: Yes (Life-Threatening, Hospitalization, Other)
  Sender: FDA-Public Use
  Company Number: BR-BRISTOL-MYERS SQUIBB COMPANY-2022-055735

PATIENT
  Age: 69 Year
  Sex: Male
  Weight: 69 kg

DRUGS (18)
  1. CARBOPLATIN [Suspect]
     Active Substance: CARBOPLATIN
     Indication: Non-small cell lung cancer
     Route: 042
     Dates: start: 20220428
  2. CARBOPLATIN [Suspect]
     Active Substance: CARBOPLATIN
     Dosage: ALSO RECEIVED ON 22-JUN-2022
     Route: 042
     Dates: start: 20220519
  3. CARBOPLATIN [Suspect]
     Active Substance: CARBOPLATIN
     Route: 042
     Dates: start: 20220602
  4. CARBOPLATIN [Suspect]
     Active Substance: CARBOPLATIN
     Dosage: MOST RECENT DOSE RECEIVED ON 29-JUN-2022
     Route: 042
     Dates: start: 20220629, end: 20220629
  5. PACLITAXEL [Suspect]
     Active Substance: PACLITAXEL
     Indication: Non-small cell lung cancer
     Route: 042
     Dates: start: 20220428
  6. PACLITAXEL [Suspect]
     Active Substance: PACLITAXEL
     Dosage: ALSO RECEIVED ON 26-MAY-2022
     Route: 042
     Dates: start: 20220519
  7. PACLITAXEL [Suspect]
     Active Substance: PACLITAXEL
     Route: 042
     Dates: start: 20220622
  8. PACLITAXEL [Suspect]
     Active Substance: PACLITAXEL
     Route: 042
     Dates: start: 20220602
  9. PACLITAXEL [Suspect]
     Active Substance: PACLITAXEL
     Dosage: MOST RECENT DOSE RECEIVED ON 29-JUN-2022
     Route: 042
     Dates: start: 20220629, end: 20220629
  10. ATENOLOL HYDROCHLORIDE [Concomitant]
     Active Substance: ATENOLOL HYDROCHLORIDE
     Indication: Product used for unknown indication
     Route: 048
     Dates: start: 2011
  11. DIPYRONE [Concomitant]
     Active Substance: DIPYRONE
     Indication: Product used for unknown indication
     Route: 048
     Dates: start: 20220302, end: 20220609
  12. CODEINE [Concomitant]
     Active Substance: CODEINE
     Indication: Product used for unknown indication
     Route: 048
     Dates: start: 20220303, end: 20220609
  13. OMEPRAZOLE [Concomitant]
     Active Substance: OMEPRAZOLE
     Indication: Prophylaxis
     Route: 048
     Dates: start: 20220303
  14. LACTULOSE [Concomitant]
     Active Substance: LACTULOSE
     Indication: Product used for unknown indication
     Route: 048
     Dates: start: 20220305, end: 20220611
  15. INVESTIGATIONAL PRODUCT [Concomitant]
     Active Substance: INVESTIGATIONAL PRODUCT
     Indication: Prophylaxis
     Route: 030
     Dates: start: 20210331
  16. INVESTIGATIONAL PRODUCT [Concomitant]
     Active Substance: INVESTIGATIONAL PRODUCT
     Route: 030
     Dates: start: 20210422
  17. COMIRNATY [Concomitant]
     Active Substance: TOZINAMERAN
     Indication: Prophylaxis
     Route: 030
     Dates: start: 20211028
  18. COMIRNATY [Concomitant]
     Active Substance: TOZINAMERAN
     Route: 030
     Dates: start: 20220603

REACTIONS (2)
  - Alanine aminotransferase increased [Recovered/Resolved]
  - Aspartate aminotransferase increased [Recovered/Resolved]

NARRATIVE: CASE EVENT DATE: 20220608
